FAERS Safety Report 9358713 (Version 1)
Quarter: 2013Q2

REPORT INFORMATION
  Report Type: Spontaneous
  Country: US (occurrence: US)
  Receive Date: 20130620
  Receipt Date: 20130620
  Transmission Date: 20140414
  Serious: Yes (Hospitalization, Other)
  Sender: FDA-Public Use
  Company Number: US-ELI_LILLY_AND_COMPANY-US201306003585

PATIENT
  Age: 53 Year
  Sex: Female

DRUGS (7)
  1. HUMALOG 25% LISPRO, 75% NPL [Suspect]
     Indication: DIABETES MELLITUS
     Dosage: UNK, BID
     Dates: start: 2011
  2. LISINOPRIL [Concomitant]
     Dosage: 10 DF, QD
  3. LEVOTHYROXINE [Concomitant]
     Dosage: 50 UG, UNK
  4. GEMFIBROZIL [Concomitant]
     Dosage: 2 DF, QD
  5. ASA [Concomitant]
  6. ALPRAZOLAM [Concomitant]
  7. PROAIR [Concomitant]
     Dosage: UNK, PRN

REACTIONS (7)
  - Oedema peripheral [Unknown]
  - Blood glucose increased [Unknown]
  - Upper respiratory tract infection [Unknown]
  - Nausea [Unknown]
  - Vomiting [Unknown]
  - Tremor [Unknown]
  - Confusional state [Unknown]
